FAERS Safety Report 9423861 (Version 1)
Quarter: 2013Q3

REPORT INFORMATION
  Report Type: Spontaneous
  Country: CA (occurrence: CA)
  Receive Date: 20130729
  Receipt Date: 20130729
  Transmission Date: 20140515
  Serious: Yes (Hospitalization)
  Sender: FDA-Public Use
  Company Number: CA-AMGEN-CANSP2013048945

PATIENT
  Age: 62 Year
  Sex: Female
  Weight: 87.7 kg

DRUGS (7)
  1. NEULASTA [Suspect]
     Indication: PROPHYLAXIS
     Dosage: 6 MG, 48 HOURS AFTER CHEMO
     Route: 058
     Dates: start: 20130519, end: 20130711
  2. NEUPOGEN [Suspect]
     Indication: PRODUCT USED FOR UNKNOWN INDICATION
     Dosage: UNK
     Route: 065
  3. DOCETAXEL [Suspect]
     Indication: BREAST CANCER
     Dosage: 190 MG, UNK
     Route: 042
     Dates: start: 20130610
  4. DOCETAXEL [Suspect]
     Dosage: 190 MG, UNK
     Route: 042
     Dates: start: 20130702
  5. FLUOROURACIL [Concomitant]
     Indication: BREAST CANCER
     Dosage: UNK
     Route: 042
     Dates: start: 20130213
  6. EPIRUBICIN [Concomitant]
     Indication: BREAST CANCER
     Dosage: UNK
     Route: 042
     Dates: start: 20130213
  7. CYCLOPHOSPHAMIDE [Concomitant]
     Indication: BREAST CANCER
     Dosage: UNK
     Route: 042
     Dates: start: 20130213

REACTIONS (3)
  - Febrile neutropenia [Unknown]
  - Pyrexia [Not Recovered/Not Resolved]
  - Drug ineffective [Not Recovered/Not Resolved]
